FAERS Safety Report 4267279-0 (Version None)
Quarter: 2004Q1

REPORT INFORMATION
  Report Type: 
  Country: None (occurrence: None)
  Receive Date: 20040108
  Receipt Date: 20030227
  Transmission Date: 20041129
  Serious: Yes (Hospitalization, Disabling)
  Sender: FDA-Public Use
  Company Number: WAES 0302USA03118

PATIENT
  Age: 49 Year
  Sex: Female
  Weight: 69 kg

DRUGS (4)
  1. ULTRACET [Concomitant]
  2. SYNTHROID [Concomitant]
     Indication: HYPOTHYROIDISM
  3. VIOXX [Suspect]
     Indication: ARTHRALGIA
     Route: 048
     Dates: start: 20020213, end: 20020219
  4. ZOLOFT [Concomitant]

REACTIONS (27)
  - ARTHRALGIA [None]
  - ASTHENIA [None]
  - BACK PAIN [None]
  - BLOOD CHOLESTEROL INCREASED [None]
  - BLOOD GLUCOSE INCREASED [None]
  - BLOOD MAGNESIUM DECREASED [None]
  - BLOOD PRESSURE INCREASED [None]
  - CHEST PAIN [None]
  - CORONARY ARTERY OCCLUSION [None]
  - DIFFICULTY IN WALKING [None]
  - DIZZINESS [None]
  - DYSPNOEA [None]
  - ELECTROCARDIOGRAM ST SEGMENT DEPRESSION [None]
  - FATIGUE [None]
  - HEART RATE INCREASED [None]
  - HYPERHIDROSIS [None]
  - INSOMNIA [None]
  - LEUKOCYTOSIS [None]
  - LIVER DISORDER [None]
  - MYOCARDIAL INFARCTION [None]
  - NAUSEA [None]
  - NERVOUSNESS [None]
  - PAIN IN EXTREMITY [None]
  - POLLAKIURIA [None]
  - PRODUCTIVE COUGH [None]
  - PRURITUS [None]
  - PYREXIA [None]
